FAERS Safety Report 4662506-X (Version None)
Quarter: 2005Q2

REPORT INFORMATION
  Report Type: 
  Country: None (occurrence: None)
  Receive Date: 20050512
  Receipt Date: 20050427
  Transmission Date: 20051028
  Serious: Yes (Other)
  Sender: FDA-Public Use
  Company Number: 2005-0008060

PATIENT
  Age: 33 Year
  Sex: Female

DRUGS (9)
  1. VIREAD [Suspect]
     Indication: HIV INFECTION
     Dosage: ORAL
     Route: 048
  2. RITONAVIR (RITONAVIR) [Concomitant]
  3. TMC114 (PROTEASE INHIBITORS) [Concomitant]
  4. DIDANOSINE [Concomitant]
  5. ENFUVIRTIDE (ENFUVIRTIDE) [Concomitant]
  6. LOPINAVIR (LOPINAVIR) [Concomitant]
  7. ATAZANAVIR SULFATE (ATAZANAVIR SULFATE) [Concomitant]
  8. DIPYRONE TAB [Concomitant]
  9. DIHYDROCODEINE BITARTRATE INJ [Concomitant]

REACTIONS (8)
  - ASPHYXIA [None]
  - DRUG EXPOSURE DURING PREGNANCY [None]
  - FOETAL DISORDER [None]
  - FOETAL GROWTH RETARDATION [None]
  - INTRA-UTERINE DEATH [None]
  - PLACENTA PRAEVIA [None]
  - PLACENTAL DISORDER [None]
  - PLACENTAL INSUFFICIENCY [None]
